FAERS Safety Report 10619664 (Version 3)
Quarter: 2014Q4

REPORT INFORMATION
  Report Type: Report from Study
  Country: CA (occurrence: CA)
  Receive Date: 20141202
  Receipt Date: 20141222
  Transmission Date: 20150529
  Serious: Yes (Hospitalization, Other)
  Sender: FDA-Public Use
  Company Number: CA-BRISTOL-MYERS SQUIBB COMPANY-21230511

PATIENT
  Age: 86 Year
  Sex: Female

DRUGS (14)
  1. ABATACEPT [Suspect]
     Active Substance: ABATACEPT
     Indication: RHEUMATOID ARTHRITIS
     Dosage: BATCH NO-4E78094.EXP DT-AUG16
     Route: 042
     Dates: start: 20140619
  2. BISOPROLOL [Concomitant]
     Active Substance: BISOPROLOL
  3. DOMPERIDONE [Concomitant]
     Active Substance: DOMPERIDONE
  4. FOLIC ACID. [Concomitant]
     Active Substance: FOLIC ACID
  5. SULFASALAZINE. [Concomitant]
     Active Substance: SULFASALAZINE
  6. METFORMIN [Concomitant]
     Active Substance: METFORMIN HYDROCHLORIDE
  7. TEMAZEPAM. [Concomitant]
     Active Substance: TEMAZEPAM
  8. VITAMIN D [Concomitant]
     Active Substance: CHOLECALCIFEROL
  9. RISEDRONATE SODIUM. [Concomitant]
     Active Substance: RISEDRONATE SODIUM
  10. METHOTREXATE [Concomitant]
     Active Substance: METHOTREXATE
  11. DEXLANSOPRAZOLE [Concomitant]
     Active Substance: DEXLANSOPRAZOLE
  12. AMLODIPINE [Concomitant]
     Active Substance: AMLODIPINE BESYLATE
  13. ATORVASTATIN [Concomitant]
     Active Substance: ATORVASTATIN
  14. OXAZEPAM. [Concomitant]
     Active Substance: OXAZEPAM

REACTIONS (4)
  - Dizziness [Unknown]
  - Weight decreased [Not Recovered/Not Resolved]
  - Pulmonary oedema [Recovering/Resolving]
  - Abdominal pain [Unknown]

NARRATIVE: CASE EVENT DATE: 20140716
